FAERS Safety Report 8051865-6 (Version None)
Quarter: 2012Q1

REPORT INFORMATION
  Report Type: 
  Country: None (occurrence: None)
  Receive Date: 20120118
  Receipt Date: 20120106
  Transmission Date: 20120608
  Serious: Yes (Hospitalization, Other)
  Sender: FDA-Public Use
  Company Number: US-ELI_LILLY_AND_COMPANY-US201002000890

PATIENT
  Age: 47 Year
  Sex: Female

DRUGS (9)
  1. ZYPREXA [Suspect]
     Dosage: 15 MG, QD
  2. ZYPREXA [Suspect]
     Dosage: UNK
  3. ANTIDEPRESSANTS [Concomitant]
     Indication: DEPRESSION
  4. ZYPREXA [Suspect]
     Dosage: 15 MG, QD
  5. ANTIHYPERTENSIVES [Concomitant]
     Indication: HYPERTENSION
  6. ZYPREXA [Suspect]
     Indication: SCHIZOPHRENIA
     Dosage: 15 MG, UNK
  7. ZYPREXA [Suspect]
     Dosage: 20 MG, UNK
  8. NORTRIPTYLINE /00006502/ [Concomitant]
  9. ZYPREXA [Suspect]
     Dosage: 10 MG, QD

REACTIONS (23)
  - INCREASED APPETITE [None]
  - FEELING ABNORMAL [None]
  - CONSTIPATION [None]
  - DRY MOUTH [None]
  - TENDERNESS [None]
  - WEIGHT INCREASED [None]
  - FOOD CRAVING [None]
  - BLOOD PRESSURE INCREASED [None]
  - CARDIAC FAILURE CONGESTIVE [None]
  - INTENTIONAL DRUG MISUSE [None]
  - SLEEP DISORDER [None]
  - DRUG WITHDRAWAL SYNDROME [None]
  - MUSCULAR WEAKNESS [None]
  - OEDEMA PERIPHERAL [None]
  - AKATHISIA [None]
  - SOMNOLENCE [None]
  - SKIN DISORDER [None]
  - HEADACHE [None]
  - PHOBIA [None]
  - DEPRESSION [None]
  - PERICARDIAL EFFUSION [None]
  - RESTLESSNESS [None]
  - PRURITUS [None]
